FAERS Safety Report 6196868-1 (Version None)
Quarter: 2009Q2

REPORT INFORMATION
  Report Type: 
  Country: None (occurrence: None)
  Receive Date: 20090518
  Receipt Date: 20090518
  Transmission Date: 20091009
  Serious: Yes (Disabling)
  Sender: FDA-Public Use
  Company Number: None

PATIENT
  Age: 55 Year
  Sex: Female
  Weight: 61.2356 kg

DRUGS (3)
  1. CYMBALTA [Suspect]
     Indication: ANXIETY
     Dosage: 60 MG. DAILY
     Dates: start: 20080521, end: 20090412
  2. CYMBALTA [Suspect]
     Indication: BACK PAIN
     Dosage: 60 MG. DAILY
     Dates: start: 20080521, end: 20090412
  3. CYMBALTA [Suspect]
     Indication: DEPRESSION
     Dosage: 60 MG. DAILY
     Dates: start: 20080521, end: 20090412

REACTIONS (26)
  - ABDOMINAL DISTENSION [None]
  - ANXIETY [None]
  - BRUXISM [None]
  - DEPRESSION [None]
  - DIARRHOEA [None]
  - FEELING ABNORMAL [None]
  - FLATULENCE [None]
  - HEADACHE [None]
  - HYPERHIDROSIS [None]
  - IMPAIRED DRIVING ABILITY [None]
  - IMPAIRED WORK ABILITY [None]
  - INFLUENZA [None]
  - INSOMNIA [None]
  - MEMORY IMPAIRMENT [None]
  - NAUSEA [None]
  - NIGHTMARE [None]
  - PARAESTHESIA [None]
  - PERIPHERAL COLDNESS [None]
  - PYREXIA [None]
  - RETCHING [None]
  - SNEEZING [None]
  - SUICIDAL IDEATION [None]
  - TINNITUS [None]
  - VERTIGO [None]
  - VISION BLURRED [None]
  - WEIGHT INCREASED [None]
